FAERS Safety Report 5345543-1 (Version None)
Quarter: 2007Q2

REPORT INFORMATION
  Report Type: 
  Country: None (occurrence: None)
  Receive Date: 20070601
  Receipt Date: 20070601
  Transmission Date: 20071010
  Serious: Yes (Other)
  Sender: FDA-Public Use
  Company Number: None

PATIENT
  Sex: Female
  Weight: 72.5755 kg

DRUGS (1)
  1. MIRENA [Suspect]
     Indication: CONTRACEPTION
     Dates: start: 20040331, end: 20070410

REACTIONS (7)
  - ABDOMINAL DISTENSION [None]
  - ACNE CYSTIC [None]
  - BACK PAIN [None]
  - DEPRESSION [None]
  - MOOD SWINGS [None]
  - PAIN [None]
  - WEIGHT INCREASED [None]
